FAERS Safety Report 18429318 (Version 1)
Quarter: 2020Q4

REPORT INFORMATION
  Report Type: Spontaneous
  Country: US (occurrence: US)
  Receive Date: 20201027
  Receipt Date: 20201027
  Transmission Date: 20210114
  Serious: No
  Sender: FDA-Public Use
  Company Number: US-SA-2020SA297791

PATIENT

DRUGS (2)
  1. NASACORT [Suspect]
     Active Substance: TRIAMCINOLONE ACETONIDE
     Indication: RHINITIS ALLERGIC
     Dosage: 1 DF, QD
     Route: 045
  2. ALLEGRA [Concomitant]
     Active Substance: FEXOFENADINE HYDROCHLORIDE

REACTIONS (6)
  - Cough [Unknown]
  - Insomnia [Unknown]
  - Nasal discomfort [Unknown]
  - Rhinorrhoea [Unknown]
  - Nasal congestion [Not Recovered/Not Resolved]
  - Nasal dryness [Unknown]
